FAERS Safety Report 16885188 (Version 2)
Quarter: 2019Q4

REPORT INFORMATION
  Report Type: Spontaneous
  Country: US (occurrence: US)
  Receive Date: 20191004
  Receipt Date: 20191004
  Transmission Date: 20200122
  Serious: Yes (Hospitalization, Other)
  Sender: FDA-Public Use
  Company Number: US-GILEAD-2019-0431352

PATIENT
  Age: 58 Year
  Sex: Female

DRUGS (1)
  1. LETAIRIS [Suspect]
     Active Substance: AMBRISENTAN
     Indication: PULMONARY HYPERTENSION
     Route: 065

REACTIONS (5)
  - Product dose omission [Unknown]
  - Pneumonia aspiration [Unknown]
  - Peripheral swelling [Unknown]
  - Abdominal distension [Unknown]
  - Pericardial effusion [Unknown]
